FAERS Safety Report 6418355-5 (Version None)
Quarter: 2009Q4

REPORT INFORMATION
  Report Type: 
  Country: None (occurrence: None)
  Receive Date: 20091028
  Receipt Date: 20091023
  Transmission Date: 20100525
  Serious: Yes (Hospitalization)
  Sender: FDA-Public Use
  Company Number: US-GILEAD-2009-0024138

PATIENT
  Sex: Female
  Weight: 79.45 kg

DRUGS (17)
  1. LETAIRIS [Suspect]
     Indication: PULMONARY ARTERIAL HYPERTENSION
     Route: 048
     Dates: start: 20081219
  2. LASIX [Concomitant]
  3. BUMEX [Concomitant]
  4. SPIRONOLACTONE [Concomitant]
  5. INDERAL [Concomitant]
  6. DIGOXIN [Concomitant]
  7. ZOLOFT [Concomitant]
  8. NEURONTIN [Concomitant]
  9. LIPITOR [Concomitant]
  10. DETROL LA [Concomitant]
  11. RESTORIL [Concomitant]
  12. BUSPAR [Concomitant]
  13. ARIMIDEX [Concomitant]
  14. POTASSIUM CHLORIDE [Concomitant]
  15. LEVOXYL [Concomitant]
  16. BENADRYL [Concomitant]
  17. MULTI-VITAMIN [Concomitant]

REACTIONS (2)
  - DEPRESSION [None]
  - PERSONALITY DISORDER [None]
